FAERS Safety Report 8371417-8 (Version None)
Quarter: 2012Q2

REPORT INFORMATION
  Report Type: 
  Country: None (occurrence: None)
  Receive Date: 20120518
  Receipt Date: 20120507
  Transmission Date: 20120825
  Serious: No
  Sender: FDA-Public Use
  Company Number: US-ASTRAZENECA-2012SE29455

PATIENT
  Age: 83 Year
  Sex: Female
  Weight: 83 kg

DRUGS (3)
  1. SEROQUEL [Suspect]
     Indication: INSOMNIA
     Route: 048
  2. SEROQUEL [Suspect]
     Route: 048
     Dates: start: 20120506
  3. XANAX [Concomitant]

REACTIONS (2)
  - OFF LABEL USE [None]
  - DYSURIA [None]
